FAERS Safety Report 13469580 (Version 3)
Quarter: 2017Q2

REPORT INFORMATION
  Report Type: Spontaneous
  Country: CA (occurrence: CA)
  Receive Date: 20170422
  Receipt Date: 20170524
  Transmission Date: 20170830
  Serious: Yes (Other)
  Sender: FDA-Public Use
  Company Number: CA-ROCHE-1922640

PATIENT
  Sex: Female

DRUGS (8)
  1. RITUXAN [Suspect]
     Active Substance: RITUXIMAB
     Indication: GRANULOMATOSIS WITH POLYANGIITIS
     Route: 042
     Dates: start: 201411
  2. ALESSE 28 [Concomitant]
     Active Substance: ETHINYL ESTRADIOL\LEVONORGESTREL
  3. PANTOPRAZOLE [Concomitant]
     Active Substance: PANTOPRAZOLE
  4. VENTOLIN [Concomitant]
     Active Substance: ALBUTEROL SULFATE
  5. CITALOPRAM [Concomitant]
     Active Substance: CITALOPRAM HYDROBROMIDE
  6. SEPTRA [Concomitant]
     Active Substance: SULFAMETHOXAZOLE\TRIMETHOPRIM
  7. FOSINOPRIL [Concomitant]
     Active Substance: FOSINOPRIL
  8. TRAZODONE [Concomitant]
     Active Substance: TRAZODONE HYDROCHLORIDE

REACTIONS (3)
  - Pneumonia [Unknown]
  - Wound infection [Not Recovered/Not Resolved]
  - Granulomatosis with polyangiitis [Not Recovered/Not Resolved]

NARRATIVE: CASE EVENT DATE: 2017
